FAERS Safety Report 5891658-9 (Version None)
Quarter: 2008Q3

REPORT INFORMATION
  Report Type: 
  Country: None (occurrence: None)
  Receive Date: 20080908
  Receipt Date: 20080730
  Transmission Date: 20090109
  Serious: No
  Sender: FDA-Public Use
  Company Number: 002#2#2007-00317

PATIENT
  Age: 70 Year
  Sex: Male
  Weight: 60.782 kg

DRUGS (3)
  1. NEUPRO [Suspect]
     Indication: PARKINSON'S DISEASE
     Dosage: 6MG/24H,1 IN 1 D, TRANSDERMAL
     Route: 062
     Dates: start: 20070913, end: 20071007
  2. SEROQUEL [Concomitant]
  3. EXELON [Concomitant]

REACTIONS (3)
  - CONFUSIONAL STATE [None]
  - DEREALISATION [None]
  - HALLUCINATION [None]
